FAERS Safety Report 7074809-2 (Version None)
Quarter: 2010Q4

REPORT INFORMATION
  Report Type: 
  Country: None (occurrence: None)
  Receive Date: 20101029
  Receipt Date: 20101025
  Transmission Date: 20110411
  Serious: Yes (Hospitalization)
  Sender: FDA-Public Use
  Company Number: FR-WYE-H17972910

PATIENT
  Age: 74 Year
  Sex: Male

DRUGS (3)
  1. CORDARONE [Suspect]
     Route: 048
     Dates: start: 20100810, end: 20100915
  2. LOVENOX [Concomitant]
     Dosage: DOSE AND FREQUENCY NOT SPECIFIED
     Route: 058
     Dates: start: 20100910
  3. SOLUPRED [Suspect]
     Route: 048
     Dates: start: 20100810, end: 20100915

REACTIONS (1)
  - TOXIC SKIN ERUPTION [None]
